FAERS Safety Report 11335014 (Version 1)
Quarter: 2015Q3

REPORT INFORMATION
  Report Type: Spontaneous
  Country: US (occurrence: None)
  Receive Date: 20150731
  Receipt Date: 20150731
  Transmission Date: 20151125
  Serious: Yes (Life-Threatening, Disabling)
  Sender: FDA-Public Use
  Company Number: None

PATIENT
  Age: 69 Year
  Sex: Male
  Weight: 81.65 kg

DRUGS (2)
  1. TONOCARD [Suspect]
     Active Substance: TOCAINIDE HYDROCHLORIDE
     Indication: ARRHYTHMIA
     Dosage: ONE PILLS
     Route: 048
     Dates: start: 19850501, end: 20100730
  2. MULTIPLE VITIMAN [Concomitant]

REACTIONS (1)
  - Pulmonary fibrosis [None]

NARRATIVE: CASE EVENT DATE: 20150623
